FAERS Safety Report 17883324 (Version 1)
Quarter: 2020Q2

REPORT INFORMATION
  Report Type: Report from Study
  Country: US (occurrence: US)
  Receive Date: 20200611
  Receipt Date: 20200611
  Transmission Date: 20200714
  Serious: Yes (Other)
  Sender: FDA-Public Use
  Company Number: US-ROCHE-2615855

PATIENT
  Age: 49 Year
  Sex: Female
  Weight: 72.64 kg

DRUGS (8)
  1. LATUDA [Concomitant]
     Active Substance: LURASIDONE HYDROCHLORIDE
     Indication: DEPRESSION
     Route: 048
     Dates: start: 2016
  2. OCREVUS [Suspect]
     Active Substance: OCRELIZUMAB
     Indication: RELAPSING MULTIPLE SCLEROSIS
     Route: 042
     Dates: start: 201803
  3. VENLAFAXINE [Concomitant]
     Active Substance: VENLAFAXINE HYDROCHLORIDE
     Route: 048
     Dates: start: 2016
  4. CRANBERRY [VACCINIUM SPP.] [Concomitant]
     Indication: CYSTITIS
     Route: 048
  5. TRAZODONE [Concomitant]
     Active Substance: TRAZODONE HYDROCHLORIDE
     Indication: SLEEP DISORDER
     Dosage: 2 TABLETS OF 150 MG AT BEDTIME
     Route: 048
     Dates: start: 2001
  6. DEPAKOTE [Concomitant]
     Active Substance: DIVALPROEX SODIUM
     Indication: BIPOLAR DISORDER
     Dosage: EVERY EVENING
     Route: 048
  7. CALCIUM [Concomitant]
     Active Substance: CALCIUM
     Route: 065
     Dates: start: 2017
  8. OCREVUS [Suspect]
     Active Substance: OCRELIZUMAB
     Indication: MULTIPLE SCLEROSIS
     Dosage: ONGOING: YES?DATE OF TREATMENT: 14/MAY/2018, 29/MAY/2018, 06/NOV/2018, 03/MAY/2019, 04/NOV/2019, 01/
     Route: 042
     Dates: start: 20180514

REACTIONS (3)
  - Gait disturbance [Unknown]
  - Pain [Recovered/Resolved]
  - Cystitis [Recovered/Resolved]

NARRATIVE: CASE EVENT DATE: 201901
